FAERS Safety Report 19069796 (Version 3)
Quarter: 2021Q2

REPORT INFORMATION
  Report Type: Spontaneous
  Country: US (occurrence: US)
  Receive Date: 20210329
  Receipt Date: 20210525
  Transmission Date: 20210717
  Serious: Yes (Hospitalization)
  Sender: FDA-Public Use
  Company Number: US-PFIZER INC-2021263860

PATIENT
  Age: 71 Year
  Sex: Male

DRUGS (1)
  1. RUXIENCE [Suspect]
     Active Substance: RITUXIMAB-PVVR
     Indication: AUTOIMMUNE DISORDER
     Dosage: 500 MG (DAY 1, 8, 15, 22 THEN EVERY 6 MONTHS)
     Route: 042

REACTIONS (2)
  - Infection [Unknown]
  - Off label use [Unknown]
